FAERS Safety Report 9740942 (Version 2)
Quarter: 2013Q4

REPORT INFORMATION
  Report Type: Spontaneous
  Country: US (occurrence: US)
  Receive Date: 20131209
  Receipt Date: 20131217
  Transmission Date: 20140711
  Serious: No
  Sender: FDA-Public Use
  Company Number: US-TEVA-448518USA

PATIENT
  Sex: Female
  Weight: 78.09 kg

DRUGS (2)
  1. PROAIR HFA [Suspect]
     Indication: ASTHMA
     Dosage: 1 PUFF DAILY OR 2-3 PUFFS
  2. SPIRIVA [Concomitant]
     Indication: ASTHMA
     Dosage: 1 PUFF DAILY

REACTIONS (1)
  - Dyspnoea [Recovered/Resolved]
